FAERS Safety Report 14141220 (Version 1)
Quarter: 2017Q4

REPORT INFORMATION
  Report Type: Spontaneous
  Country: US (occurrence: US)
  Receive Date: 20171030
  Receipt Date: 20171030
  Transmission Date: 20180321
  Serious: Yes (Other)
  Sender: FDA-Public Use
  Company Number: US-JNJFOC-20171033618

PATIENT
  Sex: Male

DRUGS (15)
  1. LASIX [Concomitant]
     Active Substance: FUROSEMIDE
  2. FLONASE [Concomitant]
     Active Substance: FLUTICASONE PROPIONATE
  3. ZYLOPRIM [Concomitant]
     Active Substance: ALLOPURINOL
  4. PREDNISONE. [Concomitant]
     Active Substance: PREDNISONE
  5. COLCRYS [Concomitant]
     Active Substance: COLCHICINE
  6. ALLOPURINOL. [Concomitant]
     Active Substance: ALLOPURINOL
  7. AMITRIPTYLINE [Concomitant]
     Active Substance: AMITRIPTYLINE
  8. MORPHINE [Concomitant]
     Active Substance: MORPHINE
  9. ACYCLOVIR. [Concomitant]
     Active Substance: ACYCLOVIR
  10. BACTRIM [Concomitant]
     Active Substance: SULFAMETHOXAZOLE\TRIMETHOPRIM
  11. OXYCODONE [Concomitant]
     Active Substance: OXYCODONE
  12. PROTONIX [Concomitant]
     Active Substance: PANTOPRAZOLE SODIUM
  13. IMBRUVICA [Suspect]
     Active Substance: IBRUTINIB
     Indication: WALDENSTROM^S MACROGLOBULINAEMIA
     Route: 048
     Dates: start: 20161204, end: 20171002
  14. GABAPENTIN. [Concomitant]
     Active Substance: GABAPENTIN
  15. ATIVAN [Concomitant]
     Active Substance: LORAZEPAM

REACTIONS (1)
  - Loss of consciousness [Unknown]
